FAERS Safety Report 5900129-2 (Version None)
Quarter: 2008Q3

REPORT INFORMATION
  Report Type: 
  Country: None (occurrence: None)
  Receive Date: 20080926
  Receipt Date: 20080919
  Transmission Date: 20090109
  Serious: Yes (Death)
  Sender: FDA-Public Use
  Company Number: US-BAXTER-2008BH009994

PATIENT

DRUGS (1)
  1. MORPHINE SULFATE INJ [Suspect]
     Indication: PAIN MANAGEMENT
     Route: 042
     Dates: start: 20080918, end: 20080918

REACTIONS (3)
  - ACCIDENTAL OVERDOSE [None]
  - DEATH [None]
  - DEVICE MALFUNCTION [None]
